FAERS Safety Report 8605964-8 (Version None)
Quarter: 2012Q3

REPORT INFORMATION
  Report Type: 
  Country: None (occurrence: None)
  Receive Date: 20120820
  Receipt Date: 20120731
  Transmission Date: 20120928
  Serious: Yes (Death)
  Sender: FDA-Public Use
  Company Number: FR-ROCHE-1095703

PATIENT
  Age: 89 Year
  Sex: Female

DRUGS (16)
  1. NEXIUM [Concomitant]
  2. LOVENOX [Suspect]
     Indication: PROPHYLAXIS
     Route: 058
     Dates: start: 20120618, end: 20120630
  3. GAVISCON (FRANCE) [Concomitant]
  4. OXYCODONE HYDROCHLORIDE [Suspect]
     Indication: ABDOMINAL PAIN
     Route: 048
     Dates: start: 20120618, end: 20120629
  5. TRAMADOL HCL [Concomitant]
  6. ALPRAZOLAM [Concomitant]
  7. CYMBALTA [Suspect]
     Indication: ANXIETY
     Route: 048
     Dates: start: 20120626, end: 20120629
  8. ACETAMINOPHEN [Concomitant]
  9. ROCEPHIN [Suspect]
     Indication: CARDIAC FAILURE
  10. ASPIRIN [Concomitant]
  11. TRANSIPEG (FRANCE) [Concomitant]
  12. FUROSEMIDE [Concomitant]
  13. ROCEPHIN [Suspect]
     Indication: LUNG INFECTION
     Route: 058
     Dates: start: 20120618, end: 20120629
  14. FOLIC ACID [Suspect]
     Indication: FOLATE DEFICIENCY
     Route: 048
     Dates: start: 20120619, end: 20120629
  15. CALCIUM CARBONATE [Concomitant]
  16. POTASSIUM CHLORIDE [Concomitant]

REACTIONS (3)
  - OCULAR ICTERUS [None]
  - CYTOLYTIC HEPATITIS [None]
  - PYREXIA [None]
